FAERS Safety Report 4882009-7 (Version None)
Quarter: 2006Q1

REPORT INFORMATION
  Report Type: 
  Country: None (occurrence: None)
  Receive Date: 20060112
  Receipt Date: 20060104
  Transmission Date: 20060701
  Serious: Yes (Disabling, Other)
  Sender: FDA-Public Use
  Company Number: 2006-00034

PATIENT
  Age: 52 Year
  Sex: Male

DRUGS (2)
  1. PREDNISONE [Suspect]
     Indication: TEMPORAL ARTERITIS
     Dosage: 60 MG DAILY, THEN TAPERED, ORAL
     Route: 048
     Dates: start: 20050101
  2. METHYLPREDNISOLONE ACETATE [Suspect]
     Indication: TEMPORAL ARTERITIS
     Dosage: 1G, DAILY X 3 DAYS, INTRAVENOUS
     Route: 042
     Dates: start: 20050101, end: 20050101

REACTIONS (1)
  - CHORIORETINOPATHY [None]
